FAERS Safety Report 7398742-1 (Version None)
Quarter: 2011Q2

REPORT INFORMATION
  Report Type: 
  Country: None (occurrence: None)
  Receive Date: 20110401
  Receipt Date: 20110401
  Transmission Date: 20111010
  Serious: Yes (Hospitalization)
  Sender: FDA-Public Use
  Company Number: None

PATIENT
  Age: 63 Year
  Sex: Male
  Weight: 76 kg

DRUGS (2)
  1. NAPROXEN [Suspect]
     Indication: PAIN
     Dates: start: 20110202, end: 20110218
  2. WARFARIN [Suspect]
     Indication: ATRIAL FIBRILLATION
     Dates: start: 20110202, end: 20110222

REACTIONS (1)
  - GASTRIC HAEMORRHAGE [None]
